FAERS Safety Report 4309340-8 (Version None)
Quarter: 2004Q1

REPORT INFORMATION
  Report Type: 
  Country: None (occurrence: None)
  Receive Date: 20040302
  Receipt Date: 20040225
  Transmission Date: 20041129
  Serious: Yes (Life-Threatening, Hospitalization)
  Sender: FDA-Public Use
  Company Number: WAES 0402GBR00257

PATIENT
  Age: 91 Year
  Sex: Female

DRUGS (8)
  1. ACETAMINOPHEN [Concomitant]
     Indication: BACK PAIN
     Route: 048
  2. FOSAMAX [Suspect]
     Indication: PAIN
     Route: 048
     Dates: start: 20030301, end: 20040203
  3. DICLOFENAC [Suspect]
     Indication: PAIN
     Route: 048
     Dates: start: 20030601, end: 20040203
  4. FENTANYL [Concomitant]
     Indication: BACK PAIN
  5. LANSOPRAZOLE [Concomitant]
  6. LEVOTHYROXINE SODIUM [Concomitant]
     Indication: THYROID DISORDER
     Route: 048
  7. SENNA [Concomitant]
     Indication: CONSTIPATION
     Route: 048
  8. TROSPIUM CHLORIDE [Concomitant]
     Indication: POLLAKIURIA
     Route: 048

REACTIONS (2)
  - GASTROINTESTINAL HAEMORRHAGE [None]
  - HAEMATEMESIS [None]
